FAERS Safety Report 16858442 (Version 1)
Quarter: 2019Q3

REPORT INFORMATION
  Report Type: Spontaneous
  Country: US (occurrence: US)
  Receive Date: 20190805
  Receipt Date: 20190805
  Transmission Date: 20191005
  Serious: No
  Sender: FDA-Public Use
  Company Number: None

PATIENT
  Age: 33 Year
  Sex: Male

DRUGS (1)
  1. CINACALCET HCL 60MG SLATE RUN [Suspect]
     Active Substance: CINACALCET HYDROCHLORIDE
     Indication: RENAL FAILURE
     Route: 048
     Dates: start: 20190612

REACTIONS (1)
  - Vomiting [None]

NARRATIVE: CASE EVENT DATE: 201906
